FAERS Safety Report 12555689 (Version 2)
Quarter: 2016Q3

REPORT INFORMATION
  Report Type: Spontaneous
  Country: US (occurrence: US)
  Receive Date: 20160714
  Receipt Date: 20160818
  Transmission Date: 20161109
  Serious: No
  Sender: FDA-Public Use
  Company Number: US-PFIZER INC-2016308410

PATIENT
  Age: 62 Year
  Sex: Male

DRUGS (5)
  1. DAYPRO [Suspect]
     Active Substance: OXAPROZIN
     Dosage: UNK
  2. PROMETHAZINE HCL [Suspect]
     Active Substance: PROMETHAZINE HYDROCHLORIDE
     Dosage: UNK
  3. INDOCIN [Suspect]
     Active Substance: INDOMETHACIN\INDOMETHACIN SODIUM
     Dosage: UNK
  4. HUMULIN NOS [Suspect]
     Active Substance: INSULIN HUMAN
     Dosage: UNK
  5. TIZANIDINE. [Suspect]
     Active Substance: TIZANIDINE
     Dosage: UNK

REACTIONS (4)
  - Dyspnoea [Unknown]
  - Drug hypersensitivity [Unknown]
  - Tremor [Unknown]
  - Headache [Unknown]
